FAERS Safety Report 8762568 (Version 1)
Quarter: 2012Q4

REPORT INFORMATION
  Report Type: 
  Country: CN (occurrence: CN)
  Receive Date: 20120830
  Receipt Date: 20120830
  Transmission Date: 20130627
  Serious: Yes (Other)
  Sender: FDA-Public Use
  Company Number: CN-ROCHE-1107942

PATIENT
  Age: 70 Year
  Sex: Male
  Weight: 69 kg

DRUGS (1)
  1. ROCEPHIN [Suspect]
     Indication: GINGIVITIS
     Route: 041
     Dates: start: 20101211, end: 20101211

REACTIONS (2)
  - Scrotal pain [Recovered/Resolved]
  - Pruritus [Recovered/Resolved]
